FAERS Safety Report 7501876-1 (Version None)
Quarter: 2011Q2

REPORT INFORMATION
  Report Type: 
  Country: None (occurrence: None)
  Receive Date: 20110525
  Receipt Date: 20110511
  Transmission Date: 20111010
  Serious: Yes (Hospitalization)
  Sender: FDA-Public Use
  Company Number: CA-JNJFOC-20110506353

PATIENT
  Sex: Female

DRUGS (6)
  1. METAMUCIL-2 [Concomitant]
  2. REMICADE [Suspect]
     Route: 042
     Dates: start: 20080401
  3. PREDNISONE [Concomitant]
  4. REMICADE [Suspect]
     Indication: PRODUCT USED FOR UNKNOWN INDICATION
     Route: 042
     Dates: start: 20110321
  5. IMURAN [Concomitant]
  6. FOSAMAX [Concomitant]

REACTIONS (1)
  - FALL [None]
